FAERS Safety Report 18109738 (Version 1)
Quarter: 2020Q3

REPORT INFORMATION
  Report Type: Spontaneous
  Country: JP (occurrence: JP)
  Receive Date: 20200804
  Receipt Date: 20200804
  Transmission Date: 20201103
  Serious: Yes (Hospitalization)
  Sender: FDA-Public Use
  Company Number: JP-SA-2020SA149354

PATIENT

DRUGS (28)
  1. FOLINIC ACID [Concomitant]
     Active Substance: LEUCOVORIN
  2. LIPITOR [Concomitant]
     Active Substance: ATORVASTATIN CALCIUM
  3. HUMALOG [Concomitant]
     Active Substance: INSULIN LISPRO
  4. FUROSEMIDE. [Concomitant]
     Active Substance: FUROSEMIDE
     Dosage: 10 MG
     Dates: start: 20200516
  5. DEXART [Concomitant]
     Active Substance: DEXAMETHASONE SODIUM PHOSPHATE
     Dosage: 6.6 G
     Route: 042
     Dates: start: 20200218, end: 20200407
  6. ROCALTROL [Concomitant]
     Active Substance: CALCITRIOL
  7. TENORMIN [Concomitant]
     Active Substance: ATENOLOL
  8. MAGMITT [Concomitant]
     Active Substance: MAGNESIUM OXIDE
  9. ADALAT CC [Concomitant]
     Active Substance: NIFEDIPINE
  10. EXEMESTANE. [Concomitant]
     Active Substance: EXEMESTANE
     Dosage: UNK
     Dates: end: 20200517
  11. APREPITANT. [Concomitant]
     Active Substance: APREPITANT
     Dosage: DAY1 125 MG, DAY2?3 80MG)
     Dates: start: 20200218, end: 20200409
  12. SPIRONOLACTONE. [Concomitant]
     Active Substance: SPIRONOLACTONE
     Dosage: 25 MG
     Dates: start: 20200516
  13. TRESIBA [Concomitant]
     Active Substance: INSULIN DEGLUDEC
  14. ELPLAT [Suspect]
     Active Substance: OXALIPLATIN
     Dosage: 200 MG, Q3W
     Route: 041
     Dates: start: 20200310
  15. FLUOROURACIL. [Concomitant]
     Active Substance: FLUOROURACIL
     Route: 065
  16. XELODA [Concomitant]
     Active Substance: CAPECITABINE
     Dosage: 2400 MG, Q3W
     Dates: start: 20200114
  17. CLOPIDOGREL BISULFATE. [Concomitant]
     Active Substance: CLOPIDOGREL BISULFATE
  18. XELODA [Concomitant]
     Active Substance: CAPECITABINE
     Dosage: UNK
     Dates: start: 20200616
  19. ELPLAT [Suspect]
     Active Substance: OXALIPLATIN
     Dosage: 200 MG, Q3W
     Route: 041
     Dates: start: 20200407
  20. XELODA [Concomitant]
     Active Substance: CAPECITABINE
     Dosage: UNK
     Dates: start: 20200218
  21. XELODA [Concomitant]
     Active Substance: CAPECITABINE
     Dosage: 2400 MG, Q3W
     Dates: start: 20200310
  22. XELODA [Concomitant]
     Active Substance: CAPECITABINE
     Dosage: 2400 MG, Q3W
     Dates: start: 20020407, end: 20200420
  23. THEO?DUR [Concomitant]
     Active Substance: THEOPHYLLINE ANHYDROUS
  24. ELPLAT [Suspect]
     Active Substance: OXALIPLATIN
     Indication: COLON CANCER
     Dosage: 200 MG, Q3W
     Route: 041
     Dates: start: 20200218
  25. PREMINENT [Concomitant]
     Active Substance: HYDROCHLOROTHIAZIDE\LOSARTAN POTASSIUM
  26. HEPARINOID [Concomitant]
     Active Substance: CHONDROITIN SULFATE (BOVINE)
     Indication: PALMAR-PLANTAR ERYTHRODYSAESTHESIA SYNDROME
     Dosage: UNK
     Dates: start: 20200114
  27. GRANISETRON HYDROCHLORIDE. [Concomitant]
     Active Substance: GRANISETRON HYDROCHLORIDE
     Dosage: UNK
     Dates: start: 20200218, end: 20200407
  28. METOCLOPRAMIDE. [Concomitant]
     Active Substance: METOCLOPRAMIDE
     Dosage: UNK
     Dates: start: 20200218

REACTIONS (3)
  - Venoocclusive liver disease [Unknown]
  - Ascites [Recovering/Resolving]
  - Metrorrhagia [Unknown]

NARRATIVE: CASE EVENT DATE: 20200413
